FAERS Safety Report 9253507 (Version 2)
Quarter: 2014Q1

REPORT INFORMATION
  Report Type: Spontaneous
  Country: US (occurrence: US)
  Receive Date: 20130425
  Receipt Date: 20140103
  Transmission Date: 20141002
  Serious: Yes (Disabling)
  Sender: FDA-Public Use
  Company Number: US-ASTRAZENECA-2013SE27527

PATIENT
  Age: 53 Year
  Sex: Female
  Weight: 70.3 kg

DRUGS (17)
  1. NEXIUM [Suspect]
     Indication: GASTROOESOPHAGEAL REFLUX DISEASE
     Dosage: ONCE PER DAY INCREASED TO TWO TIMES PER DAY
     Route: 048
     Dates: start: 1995, end: 2011
  2. NEXIUM [Suspect]
     Indication: GASTROOESOPHAGEAL REFLUX DISEASE
     Route: 048
     Dates: start: 1998, end: 2010
  3. NEXIUM [Suspect]
     Indication: GASTROOESOPHAGEAL REFLUX DISEASE
     Route: 048
     Dates: start: 2001, end: 2009
  4. NEXIUM [Suspect]
     Indication: GASTROOESOPHAGEAL REFLUX DISEASE
     Route: 048
     Dates: start: 20100119
  5. NEXIUM [Suspect]
     Indication: GASTROOESOPHAGEAL REFLUX DISEASE
     Route: 048
     Dates: start: 2010, end: 2012
  6. PRILOSEC [Suspect]
     Indication: GASTROOESOPHAGEAL REFLUX DISEASE
     Route: 048
     Dates: start: 2013
  7. PEPTO BISMOL [Concomitant]
     Dosage: OTC FOR FEW MONTHS SEVEREAL TIMES IN MONTHS
     Dates: start: 2001
  8. WELLBUTRIN [Concomitant]
  9. EFFEXOR [Concomitant]
  10. ZOCOR [Concomitant]
     Indication: BLOOD CHOLESTEROL INCREASED
  11. PREVACID [Concomitant]
     Indication: GASTROOESOPHAGEAL REFLUX DISEASE
  12. LOTREL [Concomitant]
     Indication: BLOOD PRESSURE INCREASED
  13. IRON [Concomitant]
     Indication: ANAEMIA
  14. ASPIRIN [Concomitant]
  15. CYMBALTA [Concomitant]
     Dates: start: 20100119
  16. LUNESTA [Concomitant]
     Dates: start: 20100119
  17. AZOR [Concomitant]
     Dosage: 5-20 MG
     Dates: start: 20110731

REACTIONS (5)
  - Appendix disorder [Unknown]
  - Osteoporosis [Unknown]
  - Bone disorder [Unknown]
  - Rib fracture [Unknown]
  - Clavicle fracture [Unknown]
